FAERS Safety Report 18915445 (Version 1)
Quarter: 2021Q1

REPORT INFORMATION
  Report Type: Report from Study
  Country: AU (occurrence: AU)
  Receive Date: 20210219
  Receipt Date: 20210219
  Transmission Date: 20210420
  Serious: Yes (Other)
  Sender: FDA-Public Use
  Company Number: AU-NALPROPION PHARMACEUTICALS INC.-2020-011418

PATIENT

DRUGS (7)
  1. CONTRAVE [Suspect]
     Active Substance: BUPROPION HYDROCHLORIDE\NALTREXONE HYDROCHLORIDE
     Indication: WEIGHT DECREASED
     Dosage: 2 TABLETS IN THE MORNING AND 1 TABLET AT NIGHT
     Route: 065
     Dates: start: 20200918
  2. CONTRAVE [Suspect]
     Active Substance: BUPROPION HYDROCHLORIDE\NALTREXONE HYDROCHLORIDE
     Dosage: 2 TABLETS IN THE MORNING
     Route: 065
  3. CONTRAVE [Suspect]
     Active Substance: BUPROPION HYDROCHLORIDE\NALTREXONE HYDROCHLORIDE
     Dosage: 1 TABLET TWICE DAILY (RECOMMENCED)
     Route: 065
     Dates: start: 20201002
  4. CAVSTAT [Concomitant]
     Indication: HYPERCHOLESTEROLAEMIA
     Dosage: 1 DAILY
  5. CONTRAVE [Suspect]
     Active Substance: BUPROPION HYDROCHLORIDE\NALTREXONE HYDROCHLORIDE
     Dosage: 2 TABLETS TWICE DAILY
     Route: 065
     Dates: start: 20210131, end: 20210202
  6. BRILINTA [Concomitant]
     Active Substance: TICAGRELOR
     Indication: ANTICOAGULANT THERAPY
     Dosage: 2 DAILY
  7. ASPIRIN                            /00002701/ [Concomitant]
     Active Substance: ASPIRIN
     Indication: ANTICOAGULANT THERAPY
     Dosage: 100 MILLIGRAM, DAILY

REACTIONS (8)
  - Seizure [Recovered/Resolved]
  - Abdominal pain [Recovered/Resolved]
  - Fatigue [Not Recovered/Not Resolved]
  - Insomnia [Not Recovered/Not Resolved]
  - Dry throat [Recovered/Resolved]
  - Diarrhoea [Recovered/Resolved]
  - Constipation [Not Recovered/Not Resolved]
  - Nightmare [Not Recovered/Not Resolved]

NARRATIVE: CASE EVENT DATE: 20200929
